FAERS Safety Report 14203048 (Version 2)
Quarter: 2017Q4

REPORT INFORMATION
  Report Type: Report from Study
  Country: None (occurrence: CO)
  Receive Date: 20171120
  Receipt Date: 20171214
  Transmission Date: 20180321
  Serious: Yes (Hospitalization, Other)
  Sender: FDA-Public Use
  Company Number: CO-ABBVIE-17K-036-2142894-00

PATIENT
  Age: 57 Year
  Sex: Male

DRUGS (1)
  1. HUMIRA [Suspect]
     Active Substance: ADALIMUMAB
     Indication: PSORIASIS
     Route: 058
     Dates: start: 20160923, end: 20170825

REACTIONS (3)
  - Aortic valve replacement [Recovering/Resolving]
  - Cardiac valve replacement complication [Recovering/Resolving]
  - Heart valve replacement [Recovering/Resolving]

NARRATIVE: CASE EVENT DATE: 201710
